FAERS Safety Report 9800359 (Version 1)
Quarter: 2014Q1

REPORT INFORMATION
  Report Type: Spontaneous
  Country: DE (occurrence: DE)
  Receive Date: 20140106
  Receipt Date: 20140106
  Transmission Date: 20141002
  Serious: Yes (Hospitalization)
  Sender: FDA-Public Use
  Company Number: DE-DRREDDYS-GER/GER/13/0036718

PATIENT
  Age: 83 Year
  Sex: Female

DRUGS (2)
  1. IBUPROFEN [Suspect]
     Indication: PAIN
     Dosage: DAILY DOSE: 400 MG MILLIGRAM(S) EVERY DAY
     Route: 048
     Dates: start: 20131025, end: 20131026
  2. AMOXICILLIN [Concomitant]
     Indication: TOOTH EXTRACTION
     Dosage: DAILY DOSE: 3000 MG MILLIGRAM(S) EVERY DAY
     Route: 048
     Dates: start: 20131017, end: 20131021

REACTIONS (1)
  - Drug eruption [Not Recovered/Not Resolved]
